FAERS Safety Report 9393944 (Version 1)
Quarter: 2013Q3

REPORT INFORMATION
  Report Type: Spontaneous
  Country: TR (occurrence: None)
  Receive Date: 20130705
  Receipt Date: 20130705
  Transmission Date: 20140515
  Serious: Yes (Other)
  Sender: FDA-Public Use
  Company Number: 7221573

PATIENT
  Age: 34 Year
  Sex: Female

DRUGS (1)
  1. EUTHYROX [Suspect]
     Indication: THYROIDITIS CHRONIC
     Dosage: 85 MCG, 1 IN 1 D
     Route: 048
     Dates: start: 2009

REACTIONS (2)
  - Angioedema [None]
  - Urticaria chronic [None]
